FAERS Safety Report 8949883 (Version 1)
Quarter: 2012Q4

REPORT INFORMATION
  Report Type: Report from Study
  Country: FR (occurrence: FR)
  Receive Date: 20121206
  Receipt Date: 20121206
  Transmission Date: 20130627
  Serious: Yes (Other)
  Sender: FDA-Public Use
  Company Number: FR-PFIZER INC-2012299909

PATIENT
  Age: 57 Year
  Sex: Female
  Weight: 100 kg

DRUGS (7)
  1. ARACYTINE [Suspect]
     Dosage: UNK
     Route: 042
     Dates: start: 200811
  2. ARACYTINE [Suspect]
     Dosage: UNK
     Route: 042
     Dates: start: 20081229
  3. ARACYTINE [Suspect]
     Dosage: 1900 mg/day
     Route: 042
     Dates: start: 20090209
  4. DAUNORUBICIN [Suspect]
     Indication: ACUTE MYELOID LEUKEMIA
     Dosage: UNK
     Route: 042
     Dates: start: 200811
  5. DAUNORUBICIN [Suspect]
     Dosage: UNK
     Route: 042
     Dates: start: 20081229
  6. DAUNORUBICIN [Suspect]
     Dosage: 115 mg/day
     Route: 042
     Dates: start: 20090209
  7. LYRICA [Concomitant]
     Indication: NEUROPATHIC PAIN

REACTIONS (2)
  - Febrile bone marrow aplasia [Recovered/Resolved]
  - Herpes zoster [Unknown]
